FAERS Safety Report 7290736-X (Version None)
Quarter: 2011Q1

REPORT INFORMATION
  Report Type: 
  Country: None (occurrence: None)
  Receive Date: 20110214
  Receipt Date: 20110202
  Transmission Date: 20110831
  Serious: Yes (Hospitalization)
  Sender: FDA-Public Use
  Company Number: JP-ROCHE-748323

PATIENT
  Sex: Male
  Weight: 49 kg

DRUGS (2)
  1. CAPECITABINE [Suspect]
     Indication: GASTRIC CANCER
     Dosage: 2 WEEKS ADMINISTRATION FOLLOWED BY 1 WEEK REST. MOST RECENT DOSE PRIOR TO SAE: 02 DECEMBER 2010.
     Route: 048
     Dates: start: 20100812
  2. CISPLATIN [Suspect]
     Indication: GASTRIC CANCER
     Dosage: MOST RECENT DOSE PRIOR TO SAE: 26 NOVEMBER 2010.
     Route: 042
     Dates: start: 20100812

REACTIONS (2)
  - BLOOD PRESSURE DECREASED [None]
  - DIZZINESS [None]
